FAERS Safety Report 5874780-2 (Version None)
Quarter: 2008Q3

REPORT INFORMATION
  Report Type: 
  Country: None (occurrence: None)
  Receive Date: 20080909
  Receipt Date: 20080902
  Transmission Date: 20090109
  Serious: Yes (Hospitalization)
  Sender: FDA-Public Use
  Company Number: US-SOLVAY-00208004124

PATIENT
  Age: 24430 Day
  Sex: Male
  Weight: 73 kg

DRUGS (8)
  1. OMEPRAZOLE [Concomitant]
     Indication: GASTROOESOPHAGEAL REFLUX DISEASE
     Dosage: DAILY DOSE: 40 MILLIGRAM(S)
     Route: 048
  2. ANDROGEL [Suspect]
     Indication: BLOOD TESTOSTERONE DECREASED
     Dosage: DAILY DOSE: 7.5 GRAM(S) VIA PUMP
     Route: 062
     Dates: start: 20070501, end: 20080515
  3. ADVAIR DISKUS 100/50 [Concomitant]
     Indication: DRUG USE FOR UNKNOWN INDICATION
     Dosage: DAILY DOSE: 2 DOSAGE FORM; 250/50 BID
     Route: 055
  4. ALLOPURINOL [Concomitant]
     Indication: GOUT
     Dosage: DAILY DOSE: 300 MILLIGRAM(S)
     Route: 048
  5. WELLBUTRIN XL [Concomitant]
     Indication: ANXIETY
     Dosage: DAILY DOSE: 450 MILLIGRAM(S)
     Route: 048
  6. MIRTAZAPINE [Concomitant]
     Indication: DRUG USE FOR UNKNOWN INDICATION
     Dosage: DAILY DOSE: 30 MILLIGRAM(S)
     Route: 048
  7. FLUCONAZOLE [Concomitant]
     Indication: FUNGAL INFECTION
     Dosage: DAILY DOSE:  UNKNOWN; AS NEEDED
     Route: 048
  8. ASPIRIN [Concomitant]
     Indication: ILL-DEFINED DISORDER
     Dosage: DAILY DOSE:  UNKNOWN
     Route: 048

REACTIONS (2)
  - MYOCARDIAL INFARCTION [None]
  - WEIGHT DECREASED [None]
